FAERS Safety Report 6869021-3 (Version None)
Quarter: 2010Q3

REPORT INFORMATION
  Report Type: 
  Country: None (occurrence: None)
  Receive Date: 20100722
  Receipt Date: 20080628
  Transmission Date: 20110219
  Serious: Yes (Other)
  Sender: FDA-Public Use
  Company Number: US-PFIZER INC-2008056124

PATIENT
  Age: 78 Year
  Sex: Male

DRUGS (3)
  1. CHANTIX [Suspect]
     Dosage: ONE DOSE ONLY
     Route: 048
     Dates: start: 20080525, end: 20080525
  2. LISINOPRIL AND HYDROCHLOROTHIAZIDE [Concomitant]
     Indication: HYPERTENSION
     Route: 048
     Dates: start: 20070101
  3. ASPIRIN [Concomitant]
     Route: 048
     Dates: start: 20040601

REACTIONS (6)
  - ABNORMAL DREAMS [None]
  - BLOOD PRESSURE INCREASED [None]
  - DECREASED APPETITE [None]
  - FEELING ABNORMAL [None]
  - INTENTIONAL DRUG MISUSE [None]
  - NAUSEA [None]
